FAERS Safety Report 5807357-5 (Version None)
Quarter: 2008Q3

REPORT INFORMATION
  Report Type: 
  Country: None (occurrence: None)
  Receive Date: 20080711
  Receipt Date: 20080702
  Transmission Date: 20090109
  Serious: Yes (Other)
  Sender: FDA-Public Use
  Company Number: US-JNJFOC-20080701551

PATIENT
  Age: 19 Year
  Sex: Male
  Weight: 95.26 kg

DRUGS (5)
  1. TYLENOL SINUS CONGESTION + PAIN NIGHTTIME COOL BURST [Suspect]
     Indication: HYPERSENSITIVITY
     Route: 048
  2. BENADRYL [Suspect]
     Indication: HYPERSENSITIVITY
     Route: 048
  3. ZYRTEC [Concomitant]
  4. PREDNISONE TAB [Concomitant]
  5. EPINEPHRINE [Concomitant]

REACTIONS (3)
  - DRUG INEFFECTIVE FOR UNAPPROVED INDICATION [None]
  - DYSPNOEA [None]
  - URTICARIA [None]
